FAERS Safety Report 22924942 (Version 3)
Quarter: 2024Q1

REPORT INFORMATION
  Report Type: Spontaneous
  Country: US (occurrence: US)
  Receive Date: 20230908
  Receipt Date: 20240104
  Transmission Date: 20240409
  Serious: Yes (Hospitalization, Other)
  Sender: FDA-Public Use
  Company Number: US-PFIZER INC-202300294874

PATIENT
  Age: 85 Year
  Sex: Male
  Weight: 79.38 kg

DRUGS (1)
  1. VYNDAMAX [Suspect]
     Active Substance: TAFAMIDIS
     Indication: Cardiac amyloidosis
     Dosage: 61 MG AT NIGHT
     Route: 048

REACTIONS (6)
  - Exeresis [Unknown]
  - Amnesia [Recovering/Resolving]
  - Hypersomnia [Recovered/Resolved]
  - Atrial fibrillation [Unknown]
  - Confusional state [Recovering/Resolving]
  - Disorientation [Recovering/Resolving]

NARRATIVE: CASE EVENT DATE: 20230825
